FAERS Safety Report 10010193 (Version 2)
Quarter: 2014Q1

REPORT INFORMATION
  Report Type: Spontaneous
  Country: US (occurrence: US)
  Receive Date: 20140312
  Receipt Date: 20140312
  Transmission Date: 20141002
  Serious: No
  Sender: FDA-Public Use
  Company Number: US-INCYTE CORPORATION-2013IN001383

PATIENT
  Age: 79 Year
  Sex: Female

DRUGS (19)
  1. JAKAFI [Suspect]
     Indication: MYELOFIBROSIS
     Dosage: 20 MG, BID
     Route: 048
     Dates: start: 20130606
  2. LEVOTHYROXINE [Concomitant]
  3. NEXIUM [Concomitant]
  4. WELCHOL [Concomitant]
  5. KLONOPIN [Concomitant]
  6. PAXIL [Concomitant]
  7. GABAPENTIN [Concomitant]
  8. FUROSEMIDE [Concomitant]
  9. XARELTO [Concomitant]
  10. MAGNESIUM OXIDE [Concomitant]
  11. HYDREA [Concomitant]
  12. ACYCLOVIR [Concomitant]
  13. VITAMIN D NOS [Concomitant]
  14. CALCIUM [Concomitant]
  15. FAMCICLOVIR [Concomitant]
  16. MACRODANTIN [Concomitant]
  17. ASPIRIN [Concomitant]
  18. MULTIVITAMIN [Concomitant]
  19. TYLENOL PM EXTRA STRENGTH [Concomitant]

REACTIONS (5)
  - Diarrhoea [Unknown]
  - Pruritus [Unknown]
  - Bone pain [Unknown]
  - Gait disturbance [Unknown]
  - Haemoglobin decreased [Unknown]
